FAERS Safety Report 5142803-4 (Version None)
Quarter: 2006Q4

REPORT INFORMATION
  Report Type: 
  Country: None (occurrence: None)
  Receive Date: 20061102
  Receipt Date: 20061026
  Transmission Date: 20070319
  Serious: Yes (Hospitalization)
  Sender: FDA-Public Use
  Company Number: FR-MERCK-0610FRA00080

PATIENT
  Age: 93 Year
  Sex: Female

DRUGS (11)
  1. NOROXIN [Suspect]
     Indication: URINARY TRACT INFECTION
     Route: 048
     Dates: start: 20061002, end: 20061003
  2. METOCLOPRAMIDE HYDROCHLORIDE [Concomitant]
     Indication: NAUSEA
     Route: 048
     Dates: start: 20060918, end: 20061003
  3. ACETAMINOPHEN [Concomitant]
     Indication: PAIN
     Route: 048
     Dates: end: 20061003
  4. CITALOPRAM [Suspect]
     Indication: DEPRESSION
     Route: 048
     Dates: start: 20060925, end: 20061003
  5. FLUCONAZOLE [Concomitant]
     Indication: ORAL CANDIDIASIS
     Route: 048
     Dates: start: 20060925, end: 20061003
  6. ASPIRIN [Suspect]
     Indication: THROMBOSIS PROPHYLAXIS
     Route: 048
     Dates: end: 20061003
  7. RAMIPRIL [Concomitant]
     Indication: HYPERTENSION
     Route: 048
     Dates: end: 20061003
  8. RAMIPRIL [Concomitant]
     Route: 048
     Dates: start: 20061016
  9. FUROSEMIDE [Concomitant]
     Indication: HYPERTENSION
     Route: 048
     Dates: end: 20061003
  10. FUROSEMIDE [Concomitant]
     Route: 048
     Dates: start: 20061016
  11. TRIMETAZIDINE HYDROCHLORIDE [Concomitant]
     Route: 048
     Dates: end: 20061003

REACTIONS (2)
  - GASTRIC ULCER HAEMORRHAGE [None]
  - HAEMATEMESIS [None]
